FAERS Safety Report 5609871-4 (Version None)
Quarter: 2008Q1

REPORT INFORMATION
  Report Type: 
  Country: None (occurrence: None)
  Receive Date: 20080129
  Receipt Date: 20080117
  Transmission Date: 20080703
  Serious: Yes (Other)
  Sender: FDA-Public Use
  Company Number: 2007BI024046

PATIENT
  Age: 71 Year
  Sex: Female
  Weight: 79.3795 kg

DRUGS (2)
  1. AVONEX [Suspect]
     Indication: MULTIPLE SCLEROSIS
     Dosage: 30 UG;QW;
     Dates: start: 19970101, end: 20070717
  2. DETROL [Concomitant]

REACTIONS (8)
  - BREAST CANCER FEMALE [None]
  - HYPERMETABOLISM [None]
  - LIVER DISORDER [None]
  - LUNG NEOPLASM [None]
  - LYMPHADENOPATHY [None]
  - OSTEOPENIA [None]
  - POSITRON EMISSION TOMOGRAM ABNORMAL [None]
  - SPINAL DISORDER [None]
